FAERS Safety Report 6697332-3 (Version None)
Quarter: 2010Q2

REPORT INFORMATION
  Report Type: 
  Country: None (occurrence: None)
  Receive Date: 20100422
  Receipt Date: 20100415
  Transmission Date: 20101027
  Serious: Yes (Other)
  Sender: FDA-Public Use
  Company Number: 1000013211

PATIENT
  Age: 49 Year
  Sex: Female

DRUGS (1)
  1. LEXAPRO [Suspect]
     Indication: DEPRESSION
     Dosage: 20 MG (10 MG, 2 IN 1 D), ORAL
     Route: 048
     Dates: start: 20060401, end: 20060601

REACTIONS (6)
  - DEAFNESS [None]
  - DYSARTHRIA [None]
  - EYE ROLLING [None]
  - PARAESTHESIA [None]
  - SUDDEN ONSET OF SLEEP [None]
  - VISION BLURRED [None]
